FAERS Safety Report 16270959 (Version 1)
Quarter: 2019Q2

REPORT INFORMATION
  Report Type: Spontaneous
  Country: US (occurrence: US)
  Receive Date: 20190503
  Receipt Date: 20190503
  Transmission Date: 20190711
  Serious: Yes (Other)
  Sender: FDA-Public Use
  Company Number: US-JNJFOC-20190436167

PATIENT
  Age: 50 Year
  Sex: Male
  Weight: 94.35 kg

DRUGS (27)
  1. CELECOXIB. [Suspect]
     Active Substance: CELECOXIB
     Indication: OSTEOARTHRITIS
     Route: 058
     Dates: start: 20171019, end: 20171019
  2. CELECOXIB. [Suspect]
     Active Substance: CELECOXIB
     Indication: OSTEOARTHRITIS
     Route: 048
     Dates: start: 20170510, end: 20180417
  3. CELECOXIB. [Suspect]
     Active Substance: CELECOXIB
     Indication: OSTEOARTHRITIS
     Route: 048
     Dates: start: 20180417, end: 20180616
  4. ROPIVACAINE. [Concomitant]
     Active Substance: ROPIVACAINE HYDROCHLORIDE
     Indication: PRODUCT USED FOR UNKNOWN INDICATION
     Route: 065
  5. ACETAMINOPHEN. [Suspect]
     Active Substance: ACETAMINOPHEN
     Indication: OSTEOARTHRITIS
     Route: 048
     Dates: start: 20170406
  6. TANEZUMAB [Suspect]
     Active Substance: TANEZUMAB
     Indication: OSTEOARTHRITIS
     Route: 058
     Dates: start: 20170705
  7. TANEZUMAB [Suspect]
     Active Substance: TANEZUMAB
     Indication: OSTEOARTHRITIS
     Route: 058
     Dates: start: 20170823
  8. TANEZUMAB [Suspect]
     Active Substance: TANEZUMAB
     Indication: OSTEOARTHRITIS
     Route: 058
     Dates: start: 20171019
  9. OXYCODONE [Concomitant]
     Active Substance: OXYCODONE
     Indication: PRODUCT USED FOR UNKNOWN INDICATION
     Route: 048
     Dates: start: 20180830, end: 20180913
  10. TANEZUMAB [Suspect]
     Active Substance: TANEZUMAB
     Indication: OSTEOARTHRITIS
     Route: 058
     Dates: start: 20171214
  11. TANEZUMAB [Suspect]
     Active Substance: TANEZUMAB
     Indication: OSTEOARTHRITIS
     Route: 058
     Dates: start: 20180208
  12. EPINEPHRINE. [Concomitant]
     Active Substance: EPINEPHRINE
     Indication: PRODUCT USED FOR UNKNOWN INDICATION
     Route: 065
  13. CELECOXIB. [Concomitant]
     Active Substance: CELECOXIB
     Indication: OSTEOARTHRITIS
     Route: 048
     Dates: start: 20180417, end: 20180616
  14. ACETAMINOPHEN. [Suspect]
     Active Substance: ACETAMINOPHEN
     Route: 048
  15. CELECOXIB. [Suspect]
     Active Substance: CELECOXIB
     Indication: OSTEOARTHRITIS
     Route: 058
     Dates: start: 20180409, end: 20180409
  16. CELECOXIB. [Suspect]
     Active Substance: CELECOXIB
     Indication: OSTEOARTHRITIS
     Route: 058
     Dates: start: 20170823, end: 20170823
  17. CELECOXIB. [Suspect]
     Active Substance: CELECOXIB
     Indication: OSTEOARTHRITIS
     Route: 058
     Dates: start: 20171214, end: 20171214
  18. CELECOXIB. [Suspect]
     Active Substance: CELECOXIB
     Indication: OSTEOARTHRITIS
     Route: 058
     Dates: start: 20170510, end: 20180409
  19. TANEZUMAB [Suspect]
     Active Substance: TANEZUMAB
     Indication: OSTEOARTHRITIS
     Route: 058
     Dates: start: 20180409
  20. CELECOXIB. [Suspect]
     Active Substance: CELECOXIB
     Indication: OSTEOARTHRITIS
     Route: 058
     Dates: start: 20180208, end: 20180208
  21. CELECOXIB. [Suspect]
     Active Substance: CELECOXIB
     Indication: OSTEOARTHRITIS
     Route: 048
     Dates: start: 20180701, end: 20180824
  22. TANEZUMAB [Suspect]
     Active Substance: TANEZUMAB
     Indication: OSTEOARTHRITIS
     Route: 058
     Dates: start: 20170510
  23. KETOROLAC [Concomitant]
     Active Substance: KETOROLAC\KETOROLAC TROMETHAMINE
     Indication: PRODUCT USED FOR UNKNOWN INDICATION
     Route: 065
  24. CELECOXIB. [Suspect]
     Active Substance: CELECOXIB
     Indication: OSTEOARTHRITIS
     Route: 058
     Dates: start: 20170705, end: 20170705
  25. CLONIDINE. [Concomitant]
     Active Substance: CLONIDINE
     Indication: PRODUCT USED FOR UNKNOWN INDICATION
     Route: 065
  26. PERCOCET [Concomitant]
     Active Substance: ACETAMINOPHEN\OXYCODONE HYDROCHLORIDE
     Indication: PRODUCT USED FOR UNKNOWN INDICATION
     Route: 048
     Dates: start: 20180621, end: 20180625
  27. PERCOCET [Concomitant]
     Active Substance: ACETAMINOPHEN\OXYCODONE HYDROCHLORIDE
     Indication: PRODUCT USED FOR UNKNOWN INDICATION
     Route: 048
     Dates: start: 20180625, end: 20180705

REACTIONS (4)
  - Arthralgia [Recovered/Resolved]
  - Off label use [Unknown]
  - Osteoarthritis [Recovering/Resolving]
  - Product use in unapproved indication [Unknown]

NARRATIVE: CASE EVENT DATE: 20170406
